FAERS Safety Report 6273786-1 (Version None)
Quarter: 2009Q3

REPORT INFORMATION
  Report Type: 
  Country: None (occurrence: None)
  Receive Date: 20090720
  Receipt Date: 20090709
  Transmission Date: 20100115
  Serious: Yes (Hospitalization)
  Sender: FDA-Public Use
  Company Number: B0579012A

PATIENT
  Age: 53 Year
  Sex: Female
  Weight: 122 kg

DRUGS (7)
  1. AVANDIA [Suspect]
     Indication: DRUG USE FOR UNKNOWN INDICATION
     Dosage: 4MG PER DAY
     Route: 048
     Dates: start: 20090602, end: 20090608
  2. GLICLAZIDE [Concomitant]
     Dosage: 160MG TWICE PER DAY
  3. TELMISARTAN [Concomitant]
     Dosage: 80MG PER DAY
  4. SIMVASTATIN [Concomitant]
     Dosage: 20MG PER DAY
  5. FUROSEMIDE [Concomitant]
     Dosage: 20MG PER DAY
  6. FELODIPINE [Concomitant]
     Dosage: 2.5MG PER DAY
  7. METFORMIN HCL [Concomitant]
     Dosage: 1G TWICE PER DAY

REACTIONS (4)
  - ASTHENIA [None]
  - CONDITION AGGRAVATED [None]
  - FATIGUE [None]
  - PARAESTHESIA [None]
